FAERS Safety Report 9152394 (Version 1)
Quarter: 2013Q1

REPORT INFORMATION
  Report Type: Spontaneous
  Country: US (occurrence: US)
  Receive Date: 20130308
  Receipt Date: 20130308
  Transmission Date: 20140127
  Serious: No
  Sender: FDA-Public Use
  Company Number: US-ASTRAZENECA-2013SE12422

PATIENT
  Age: 88 Year
  Sex: Female
  Weight: 53.5 kg

DRUGS (11)
  1. FASLODEX [Suspect]
     Indication: BREAST LUMP REMOVAL
     Dosage: MONTHLY
     Route: 030
  2. FOSAMAX [Suspect]
     Indication: OSTEOPOROSIS
     Route: 065
  3. LEVOTHYROXINE [Concomitant]
     Indication: THYROID DISORDER
  4. TYLENOL ARTHRITIS [Concomitant]
     Indication: PAIN
  5. LABETOLOL [Concomitant]
  6. AMLODIPINE [Concomitant]
  7. GABEPENTINE [Concomitant]
     Indication: TRIGEMINAL NEURALGIA
  8. LOSARTIN POTASSIUM [Concomitant]
  9. VITAMINS [Concomitant]
  10. QUININE AND TONIC WATER [Concomitant]
     Indication: MUSCLE SPASMS
  11. ANTI ITCH MEDICATION [Concomitant]

REACTIONS (7)
  - Osteoporosis [Not Recovered/Not Resolved]
  - Intervertebral disc compression [Not Recovered/Not Resolved]
  - Dyspepsia [Unknown]
  - Bone pain [Unknown]
  - Pain [Unknown]
  - Trigeminal neuralgia [Unknown]
  - Pruritus [Not Recovered/Not Resolved]
